FAERS Safety Report 9805220 (Version 1)
Quarter: 2014Q1

REPORT INFORMATION
  Report Type: Spontaneous
  Country: US (occurrence: US)
  Receive Date: 20140109
  Receipt Date: 20140109
  Transmission Date: 20141002
  Serious: Yes (Hospitalization, Other)
  Sender: FDA-Public Use
  Company Number: US-ROCHE-1327783

PATIENT
  Age: 87 Year
  Sex: Female

DRUGS (4)
  1. BONIVA [Suspect]
     Indication: ARTHRALGIA
     Dosage: PILL; STARTED 5-6 YEARS AGO
     Route: 048
  2. ASPIRIN [Concomitant]
  3. TYLENOL [Concomitant]
  4. MECLIZINE [Concomitant]
     Indication: DIZZINESS
     Route: 065

REACTIONS (20)
  - Constipation [Recovered/Resolved]
  - Myocardial infarction [Unknown]
  - Cerebrovascular accident [Unknown]
  - Bone pain [Unknown]
  - Arthralgia [Unknown]
  - Myalgia [Unknown]
  - Back pain [Not Recovered/Not Resolved]
  - Pain [Not Recovered/Not Resolved]
  - Muscle spasms [Not Recovered/Not Resolved]
  - Abdominal pain [Not Recovered/Not Resolved]
  - Cough [Not Recovered/Not Resolved]
  - Diarrhoea [Not Recovered/Not Resolved]
  - Influenza like illness [Unknown]
  - Dizziness [Unknown]
  - Drug ineffective [Unknown]
  - Headache [Unknown]
  - Abdominal discomfort [Not Recovered/Not Resolved]
  - Arthritis [Not Recovered/Not Resolved]
  - Dysphagia [Not Recovered/Not Resolved]
  - Medication error [Unknown]
